FAERS Safety Report 12802934 (Version 1)
Quarter: 2016Q4

REPORT INFORMATION
  Report Type: Spontaneous
  Country: US (occurrence: US)
  Receive Date: 20161003
  Receipt Date: 20161003
  Transmission Date: 20170207
  Serious: Yes (Other)
  Sender: FDA-Public Use
  Company Number: US-AMGEN-USASP2016132212

PATIENT
  Age: 68 Year
  Sex: Female

DRUGS (1)
  1. NPLATE [Suspect]
     Active Substance: ROMIPLOSTIM
     Indication: IMMUNE THROMBOCYTOPENIC PURPURA
     Dosage: UNK, QWK
     Route: 065
     Dates: start: 2014

REACTIONS (7)
  - Arthralgia [Not Recovered/Not Resolved]
  - Headache [Unknown]
  - Arthropathy [Unknown]
  - Gallbladder disorder [Unknown]
  - Discomfort [Not Recovered/Not Resolved]
  - Platelet count abnormal [Unknown]
  - Drug effect incomplete [Unknown]
